FAERS Safety Report 7998728-X (Version None)
Quarter: 2011Q4

REPORT INFORMATION
  Report Type: 
  Country: None (occurrence: None)
  Receive Date: 20111221
  Receipt Date: 20111216
  Transmission Date: 20120403
  Serious: Yes (Life-Threatening, Hospitalization)
  Sender: FDA-Public Use
  Company Number: PHFR2011GB05870

PATIENT
  Age: 14 Year
  Sex: Male
  Weight: 67 kg

DRUGS (5)
  1. AMOXICILLIN [Suspect]
     Dosage: UNK UKN, UNK
     Dates: start: 20110601
  2. CLOBAZAM [Concomitant]
     Dosage: UNK UKN, UNK
  3. TOPIRAMATE [Suspect]
     Dosage: UNK UKN, UNK
     Route: 048
     Dates: start: 20110707
  4. CARBAMAZEPINE [Suspect]
     Indication: CONVULSION
     Dosage: UNK UKN, UNK
     Route: 048
     Dates: start: 20110601, end: 20110707
  5. ACETAMINOPHEN [Concomitant]
     Dosage: UNK UKN, UNK

REACTIONS (5)
  - COAGULOPATHY [None]
  - ULTRASOUND LIVER ABNORMAL [None]
  - HEPATIC FUNCTION ABNORMAL [None]
  - DRUG RASH WITH EOSINOPHILIA AND SYSTEMIC SYMPTOMS [None]
  - RASH GENERALISED [None]
